FAERS Safety Report 7414273-4 (Version None)
Quarter: 2011Q2

REPORT INFORMATION
  Report Type: 
  Country: None (occurrence: None)
  Receive Date: 20110411
  Receipt Date: 20110411
  Transmission Date: 20111010
  Serious: Yes (Hospitalization)
  Sender: FDA-Public Use
  Company Number: None

PATIENT

DRUGS (1)
  1. ZOFRAN [Suspect]
     Dosage: 4MG Q 6 HOURS IV
     Route: 042
     Dates: start: 20101205, end: 20101205

REACTIONS (2)
  - ATRIAL FIBRILLATION [None]
  - HEART RATE INCREASED [None]
